FAERS Safety Report 7310786-4 (Version None)
Quarter: 2011Q1

REPORT INFORMATION
  Report Type: 
  Country: None (occurrence: None)
  Receive Date: 20110224
  Receipt Date: 20110131
  Transmission Date: 20110831
  Serious: No
  Sender: FDA-Public Use
  Company Number: US-B.I. PHARMACEUTICALS,INC./RIDGEFIELD-2010-BP-13826BP

PATIENT
  Sex: Male

DRUGS (6)
  1. PRADAXA [Suspect]
     Indication: ATRIAL FIBRILLATION
     Dosage: 300 MG
     Route: 048
     Dates: start: 20101201
  2. LIPITOR [Concomitant]
     Indication: BLOOD CHOLESTEROL INCREASED
  3. NIASPAN [Concomitant]
     Indication: BLOOD CHOLESTEROL INCREASED
  4. SPIRONOLACTONE [Concomitant]
     Indication: HYPERTENSION
  5. DILTIAZEM [Concomitant]
     Indication: HYPERTENSION
  6. BISOPROLOL FUMARATE [Concomitant]
     Indication: HYPERTENSION

REACTIONS (8)
  - SCAB [None]
  - DYSPEPSIA [None]
  - ABDOMINAL PAIN UPPER [None]
  - GASTROOESOPHAGEAL REFLUX DISEASE [None]
  - SCRATCH [None]
  - HEAD INJURY [None]
  - ABDOMINAL DISTENSION [None]
  - LACERATION [None]
